FAERS Safety Report 16918065 (Version 1)
Quarter: 2019Q4

REPORT INFORMATION
  Report Type: Spontaneous
  Country: IT (occurrence: IT)
  Receive Date: 20191015
  Receipt Date: 20191015
  Transmission Date: 20200122
  Serious: Yes (Hospitalization)
  Sender: FDA-Public Use
  Company Number: IT-SA-2019SA280970

PATIENT
  Age: 89 Year
  Sex: Female

DRUGS (9)
  1. PANTORC [Concomitant]
     Active Substance: PANTOPRAZOLE SODIUM
  2. FUROSEMIDE. [Concomitant]
     Active Substance: FUROSEMIDE
     Dosage: 25 MG, UNK
  3. PLAVIX [Suspect]
     Active Substance: CLOPIDOGREL BISULFATE
     Indication: THROMBOSIS PROPHYLAXIS
     Dosage: 75 MG, QD
     Route: 048
     Dates: start: 20170101, end: 20190918
  4. LEDERFOLIN [Concomitant]
     Active Substance: LEUCOVORIN CALCIUM
  5. ASACOL [Concomitant]
     Active Substance: MESALAMINE
  6. PALEXIA [Concomitant]
     Active Substance: TAPENTADOL HYDROCHLORIDE
  7. TORVAST [Concomitant]
     Active Substance: ATORVASTATIN
  8. CARDICOR [Concomitant]
     Active Substance: BISOPROLOL
  9. KARVEA [Concomitant]
     Active Substance: IRBESARTAN

REACTIONS (1)
  - Iron deficiency anaemia [Recovering/Resolving]

NARRATIVE: CASE EVENT DATE: 20190918
